FAERS Safety Report 8510070-7 (Version None)
Quarter: 2012Q3

REPORT INFORMATION
  Report Type: 
  Country: None (occurrence: None)
  Receive Date: 20120713
  Receipt Date: 20120710
  Transmission Date: 20120928
  Serious: No
  Sender: FDA-Public Use
  Company Number: US-PFIZER INC-2012165673

PATIENT
  Sex: Female
  Weight: 71.202 kg

DRUGS (3)
  1. SPRINTEC [Concomitant]
     Indication: CONTRACEPTION
     Dosage: UNK
  2. CHANTIX [Suspect]
     Indication: SMOKING CESSATION THERAPY
     Dosage: UNK, 2X/DAY
     Route: 048
     Dates: start: 20120515, end: 20120601
  3. CHANTIX [Suspect]
     Dosage: UNK, DAILY
     Route: 048
     Dates: start: 20120601, end: 20120702

REACTIONS (4)
  - RASH [None]
  - BLISTER [None]
  - SKIN DISCOLOURATION [None]
  - SKIN EXFOLIATION [None]
